FAERS Safety Report 10562400 (Version 8)
Quarter: 2017Q1

REPORT INFORMATION
  Report Type: Report from Study
  Country: BR (occurrence: BR)
  Receive Date: 20141104
  Receipt Date: 20170120
  Transmission Date: 20170428
  Serious: Yes (Hospitalization, Other)
  Sender: FDA-Public Use
  Company Number: PHHY2014BR143093

PATIENT
  Age: 11 Year
  Sex: Male
  Weight: 36 kg

DRUGS (4)
  1. EXJADE [Suspect]
     Active Substance: DEFERASIROX
     Indication: SICKLE CELL ANAEMIA
     Dosage: 15 MG/KG (1 DF OF 500 MG, AT 12.30 PM), QD
     Route: 065
     Dates: start: 2013, end: 201401
  2. EXJADE [Suspect]
     Active Substance: DEFERASIROX
     Dosage: 15 MG/KG (1 DF OF 500 MG, AT 12.30 PM), QD
     Route: 065
     Dates: start: 201406
  3. FOLIC ACID. [Concomitant]
     Active Substance: FOLIC ACID
     Indication: SICKLE CELL ANAEMIA
     Dosage: 1 DF, QW3
     Route: 048
  4. HYDROXYUREA. [Concomitant]
     Active Substance: HYDROXYUREA
     Indication: SICKLE CELL ANAEMIA
     Dosage: 1 TABLET / DAY DURING THE WEEK AND 2 TABLETS / DAY ON SATURDAY AND SUNDAY
     Route: 048

REACTIONS (19)
  - Rash pruritic [Recovered/Resolved]
  - Headache [Not Recovered/Not Resolved]
  - Liver function test abnormal [Unknown]
  - Pyrexia [Recovered/Resolved]
  - Hypersensitivity [Unknown]
  - Inappropriate schedule of drug administration [Unknown]
  - Abdominal pain [Recovered/Resolved]
  - Atrial tachycardia [Recovered/Resolved]
  - Apparent death [Unknown]
  - Bacterial infection [Recovered/Resolved]
  - Musculoskeletal chest pain [Unknown]
  - Asthenia [Recovered/Resolved]
  - Vomiting [Recovered/Resolved]
  - Wrong technique in product usage process [Unknown]
  - Chest pain [Unknown]
  - Lethargy [Recovered/Resolved]
  - Rash papular [Recovered/Resolved]
  - Blister [Unknown]
  - Odynophagia [Unknown]

NARRATIVE: CASE EVENT DATE: 201312
